FAERS Safety Report 18478138 (Version 2)
Quarter: 2020Q4

REPORT INFORMATION
  Report Type: Report from Study
  Country: CN (occurrence: CN)
  Receive Date: 20201108
  Receipt Date: 20201219
  Transmission Date: 20210114
  Serious: Yes (Other)
  Sender: FDA-Public Use
  Company Number: CN-AUROBINDO-AUR-APL-2020-056134

PATIENT
  Age: 63 Year
  Sex: Male
  Weight: 70.1 kg

DRUGS (34)
  1. TROPISETRON HYDROCHLORIDE [Concomitant]
     Active Substance: TROPISETRON HYDROCHLORIDE
     Indication: ANTIEMETIC SUPPORTIVE CARE
     Dosage: 5 MILLIGRAM
     Route: 040
     Dates: start: 20201016, end: 20201016
  2. GENTAMYCIN [Concomitant]
     Active Substance: GENTAMICIN
     Indication: BOWEL PREPARATION
     Dosage: 80 MILLIGRAM, 3 TIMES A DAY
     Route: 048
     Dates: start: 20201011
  3. GLUCOSE;SODIUM CHLORIDE [Concomitant]
     Indication: DEHYDRATION
     Dosage: 500 MILLILITER, TWO TIMES A DAY
     Route: 042
     Dates: start: 20201011
  4. SODIUM CHLORIDE. [Concomitant]
     Active Substance: SODIUM CHLORIDE
     Dosage: 500 MILLILITER, TWO TIMES A DAY
     Route: 042
     Dates: start: 20201022, end: 20201022
  5. SODIUM CHLORIDE. [Concomitant]
     Active Substance: SODIUM CHLORIDE
     Indication: DEHYDRATION
     Dosage: 500 MILLILITER, TWO TIMES A DAY
     Route: 042
     Dates: start: 20201011, end: 20201012
  6. GLUCOSE [Concomitant]
     Active Substance: DEXTROSE
     Indication: DEHYDRATION
     Dosage: 250 MILLILITER, ONCE A DAY
     Route: 042
     Dates: start: 20201026, end: 20201026
  7. EVOMELA [Suspect]
     Active Substance: MELPHALAN HYDROCHLORIDE
     Indication: PLASMA CELL MYELOMA
     Dosage: 178 MILLIGRAM
     Route: 065
     Dates: start: 20201013, end: 20201014
  8. PROMETHAZINE HYDROCHLORIDE. [Concomitant]
     Active Substance: PROMETHAZINE HYDROCHLORIDE
     Indication: CHEMOTHERAPY SIDE EFFECT PROPHYLAXIS
     Dosage: 25 MILLIGRAM, TWO TIMES A DAY
     Route: 040
     Dates: start: 20201016
  9. SODIUM CHLORIDE. [Concomitant]
     Active Substance: SODIUM CHLORIDE
     Dosage: 500 MILLILITER, ONCE A DAY
     Route: 042
     Dates: start: 20201030, end: 20201031
  10. GRANULOCYTE COLONY STIMULATING FACTOR [Concomitant]
     Active Substance: GRANULOCYTE COLONY-STIMULATING FACTOR NOS
     Indication: WHITE BLOOD CELL COUNT INCREASED
     Dosage: 350.5 MICROGRAM, ONCE A DAY
     Route: 042
     Dates: start: 20201021
  11. SODIUM CHLORIDE. [Concomitant]
     Active Substance: SODIUM CHLORIDE
     Dosage: 500 MILLILITER, TWO TIMES A DAY
     Route: 042
     Dates: start: 20201013
  12. TROPISETRON HYDROCHLORIDE [Concomitant]
     Active Substance: TROPISETRON HYDROCHLORIDE
     Dosage: 5 MILLIGRAM
     Route: 040
     Dates: start: 20201026
  13. OMEPRAZOLE. [Concomitant]
     Active Substance: OMEPRAZOLE
     Dosage: UNK, UNK (50 ML 4 ML/H BY MICROINJECTION PUMP)
     Route: 065
     Dates: start: 20201026, end: 20201026
  14. OMEPRAZOLE. [Concomitant]
     Active Substance: OMEPRAZOLE
     Dosage: 40 MILLIGRAM, TWO TIMES A DAY
     Route: 042
     Dates: start: 20201104, end: 20201113
  15. POSACONAZOLE [Concomitant]
     Active Substance: POSACONAZOLE
     Indication: FUNGAL INFECTION
     Dosage: 5 MILLILITER, 3 TIMES A DAY
     Route: 048
     Dates: start: 20201019
  16. SODIUM CHLORIDE. [Concomitant]
     Active Substance: SODIUM CHLORIDE
     Indication: DEHYDRATION
     Dosage: 500 MILLILITER, TWO TIMES A DAY
     Route: 042
     Dates: start: 20201017, end: 20201019
  17. GLUCOSE [Concomitant]
     Active Substance: DEXTROSE
     Dosage: 500 MILLILITER, ONCE A DAY
     Route: 042
     Dates: start: 20201027, end: 20201031
  18. SOMATOSTATIN [Concomitant]
     Active Substance: SOMATOSTATIN
     Indication: GASTROINTESTINAL DISORDER
     Dosage: UNK
     Route: 065
     Dates: start: 20201026, end: 20201026
  19. DEXAMETHASONE SODIUM PHOSPHATE. [Concomitant]
     Active Substance: DEXAMETHASONE SODIUM PHOSPHATE
     Indication: CHEMOTHERAPY SIDE EFFECT PROPHYLAXIS
     Dosage: 5 MILLIGRAM, TWO TIMES A DAY
     Route: 040
     Dates: start: 20201016
  20. SODIUM CHLORIDE. [Concomitant]
     Active Substance: SODIUM CHLORIDE
     Dosage: 500 MILLILITER, ONCE A DAY
     Route: 042
     Dates: start: 20201119, end: 20201119
  21. GLUCOSE [Concomitant]
     Active Substance: DEXTROSE
     Dosage: 500 MILLILITER, ONCE A DAY
     Route: 042
     Dates: start: 20201026, end: 20201030
  22. PALONOSETRON HYDROCHLORIDE. [Concomitant]
     Active Substance: PALONOSETRON HYDROCHLORIDE
     Indication: ANTIEMETIC SUPPORTIVE CARE
     Dosage: UNK
     Route: 040
     Dates: start: 20201013
  23. OMEPRAZOLE. [Concomitant]
     Active Substance: OMEPRAZOLE
     Indication: GASTROINTESTINAL DISORDER
     Dosage: UNK
     Route: 065
     Dates: start: 20201022, end: 20201113
  24. OMEPRAZOLE. [Concomitant]
     Active Substance: OMEPRAZOLE
     Dosage: 40 MILLIGRAM, ONCE A DAY
     Route: 042
     Dates: start: 20201114
  25. SODIUM CHLORIDE. [Concomitant]
     Active Substance: SODIUM CHLORIDE
     Dosage: 50 MILLILITER, ONCE A DAY
     Route: 042
     Dates: start: 20201026, end: 20201026
  26. SODIUM CHLORIDE. [Concomitant]
     Active Substance: SODIUM CHLORIDE
     Dosage: UNK, 50 ML 4 ML/H
     Route: 042
     Dates: start: 20201027, end: 20201027
  27. SODIUM BICARBONATE. [Concomitant]
     Active Substance: SODIUM BICARBONATE
     Indication: BLOOD ALKALINISATION THERAPY
     Dosage: 125 MILLILITER, ONCE A DAY
     Route: 042
     Dates: start: 20201013
  28. SODIUM CHLORIDE. [Concomitant]
     Active Substance: SODIUM CHLORIDE
     Dosage: 500 MILLILITER, ONCE A DAY
     Route: 042
     Dates: start: 20201103, end: 20201103
  29. SODIUM CHLORIDE. [Concomitant]
     Active Substance: SODIUM CHLORIDE
     Dosage: 500 MILLILITER, ONCE A DAY
     Route: 042
     Dates: start: 20201123
  30. GLUCOSE [Concomitant]
     Active Substance: DEXTROSE
     Dosage: 500 MILLILITER, ONCE A DAY
     Route: 042
     Dates: start: 20201102
  31. NYSFUNGIN [Concomitant]
     Indication: BOWEL PREPARATION
     Dosage: 500000 UI, 3 TIMES A DAY
     Route: 048
     Dates: start: 20201011
  32. OMEPRAZOLE. [Concomitant]
     Active Substance: OMEPRAZOLE
     Dosage: UNK (50 ML 4 ML/H BY MICROINJECTION PUMP)
     Route: 065
     Dates: start: 20201027, end: 20201027
  33. SOMATOSTATIN [Concomitant]
     Active Substance: SOMATOSTATIN
     Dosage: UNK
     Route: 065
     Dates: start: 20201022
  34. SODIUM CHLORIDE. [Concomitant]
     Active Substance: SODIUM CHLORIDE
     Dosage: 500 MILLILITER, TWO TIMES A DAY
     Route: 042
     Dates: start: 20201019, end: 20201019

REACTIONS (3)
  - Haematemesis [Recovered/Resolved with Sequelae]
  - Melaena [Recovered/Resolved with Sequelae]
  - Gastrointestinal haemorrhage [Recovered/Resolved]

NARRATIVE: CASE EVENT DATE: 20201026
